FAERS Safety Report 6306389-0 (Version None)
Quarter: 2009Q3

REPORT INFORMATION
  Report Type: 
  Country: None (occurrence: None)
  Receive Date: 20090812
  Receipt Date: 20090804
  Transmission Date: 20100115
  Serious: Yes (Other)
  Sender: FDA-Public Use
  Company Number: US-ELI_LILLY_AND_COMPANY-US200908001576

PATIENT
  Sex: Female

DRUGS (12)
  1. HUMALOG MIX 75/25 [Suspect]
     Indication: TYPE 2 DIABETES MELLITUS
     Dosage: 10 U, EACH MORNING
  2. HUMALOG MIX 75/25 [Suspect]
     Dosage: 8 U, EACH EVENING
  3. BETAPACE [Concomitant]
     Dosage: 10 MG, 2/D
  4. ASPIRIN [Concomitant]
     Dosage: 81 MG, UNK
  5. ALBUTEROL [Concomitant]
  6. IMDUR [Concomitant]
     Dosage: 60 MG, UNK
  7. LISINOPRIL [Concomitant]
  8. ALPHAGAN [Concomitant]
  9. COSOPT [Concomitant]
  10. OXYGEN [Concomitant]
     Indication: EMPHYSEMA
  11. PRIMIDONE [Concomitant]
     Indication: TREMOR
  12. AZOPT [Concomitant]

REACTIONS (7)
  - ANGER [None]
  - BLOOD GLUCOSE INCREASED [None]
  - CARDIAC PACEMAKER INSERTION [None]
  - INCORRECT DOSE ADMINISTERED [None]
  - MEMORY IMPAIRMENT [None]
  - STENT PLACEMENT [None]
  - WRONG TECHNIQUE IN DRUG USAGE PROCESS [None]
